FAERS Safety Report 8187868-0 (Version None)
Quarter: 2012Q1

REPORT INFORMATION
  Report Type: 
  Country: None (occurrence: None)
  Receive Date: 20120306
  Receipt Date: 20120301
  Transmission Date: 20120608
  Serious: Yes (Hospitalization)
  Sender: FDA-Public Use
  Company Number: US-GLAXOSMITHKLINE-A0897790A

PATIENT
  Age: 85 Year
  Sex: Female
  Weight: 54.1 kg

DRUGS (5)
  1. ALTACE [Concomitant]
  2. PAXIL [Concomitant]
  3. LIPITOR [Concomitant]
  4. METHIMAZOLE [Concomitant]
  5. AVANDIA [Suspect]
     Indication: DIABETES MELLITUS
     Dosage: 4MG PER DAY
     Route: 048
     Dates: start: 20050301, end: 20060901

REACTIONS (1)
  - MYOCARDIAL INFARCTION [None]
